FAERS Safety Report 25817421 (Version 1)
Quarter: 2025Q3

REPORT INFORMATION
  Report Type: Spontaneous
  Country: CA (occurrence: CA)
  Receive Date: 20250918
  Receipt Date: 20250918
  Transmission Date: 20251020
  Serious: Yes (Other)
  Sender: TEVA
  Company Number: CA-TEVA-VS-3373644

PATIENT
  Age: 81 Year
  Sex: Female

DRUGS (1)
  1. AMIODARONE [Suspect]
     Active Substance: AMIODARONE
     Indication: Product used for unknown indication
     Route: 065

REACTIONS (5)
  - Atrial fibrillation [Unknown]
  - Tachycardia [Unknown]
  - Chest pain [Unknown]
  - Fatigue [Unknown]
  - Muscular weakness [Unknown]
